FAERS Safety Report 4721689-3 (Version None)
Quarter: 2005Q3

REPORT INFORMATION
  Report Type: 
  Country: None (occurrence: None)
  Receive Date: 20050721
  Receipt Date: 20050225
  Transmission Date: 20060218
  Serious: Yes (Other)
  Sender: FDA-Public Use
  Company Number: US-BRISTOL-MYERS SQUIBB COMPANY-12877189

PATIENT
  Age: 51 Year
  Sex: Male
  Weight: 116 kg

DRUGS (8)
  1. COUMADIN [Suspect]
     Indication: COAGULOPATHY
     Dosage: 5 MG ON TUESDAY, THURSDAY, SATURDAY AND SUN. 1-1/2 TABLETS ON MONDAY, WEDNESDAY AND FRI.
     Route: 048
  2. ACYCLOVIR [Concomitant]
  3. ATENOLOL [Concomitant]
  4. BACTRIM DS [Concomitant]
  5. DILANTIN [Concomitant]
  6. PRIMIDONE [Concomitant]
  7. SUSTIVA [Concomitant]
  8. TRIZIVIR [Concomitant]

REACTIONS (1)
  - INTERNATIONAL NORMALISED RATIO INCREASED [None]
